FAERS Safety Report 14455101 (Version 1)
Quarter: 2018Q1

REPORT INFORMATION
  Report Type: Spontaneous
  Country: AU (occurrence: AU)
  Receive Date: 20180129
  Receipt Date: 20180129
  Transmission Date: 20180509
  Serious: Yes (Death, Other)
  Sender: FDA-Public Use
  Company Number: AU-ACTELION-A-NJ2017-156575

PATIENT
  Age: 78 Year
  Sex: Female

DRUGS (4)
  1. AMBRISENTAN [Concomitant]
     Active Substance: AMBRISENTAN
     Indication: PULMONARY ARTERIAL HYPERTENSION
  2. SILDENAFIL. [Concomitant]
     Active Substance: SILDENAFIL
     Indication: PULMONARY ARTERIAL HYPERTENSION
  3. VENTAVIS [Suspect]
     Active Substance: ILOPROST
     Indication: PULMONARY ARTERIAL HYPERTENSION
     Dosage: 6 NEBULIZATIONS PER DAY
     Route: 055
     Dates: start: 20160729
  4. VENTAVIS [Suspect]
     Active Substance: ILOPROST
     Dosage: 9 NEBULIZATIONS PER DAY
     Route: 055

REACTIONS (1)
  - Pulmonary arterial hypertension [Fatal]
